FAERS Safety Report 19477485 (Version 1)
Quarter: 2021Q2

REPORT INFORMATION
  Report Type: Spontaneous
  Country: US (occurrence: US)
  Receive Date: 20210630
  Receipt Date: 20210630
  Transmission Date: 20210717
  Serious: Yes (Hospitalization)
  Sender: FDA-Public Use
  Company Number: None

PATIENT
  Age: 34 Year
  Sex: Female
  Weight: 83 kg

DRUGS (4)
  1. VINCRISTINE SULFATE. [Concomitant]
     Active Substance: VINCRISTINE SULFATE
     Dates: end: 20210603
  2. CYTARABINE. [Concomitant]
     Active Substance: CYTARABINE
     Dates: end: 20210604
  3. MERCAPTOPURINE. [Suspect]
     Active Substance: MERCAPTOPURINE
     Dates: end: 20210620
  4. METHOTREXATE. [Concomitant]
     Active Substance: METHOTREXATE
     Dates: end: 20210615

REACTIONS (11)
  - Oropharyngeal pain [None]
  - Body temperature increased [None]
  - Palmar-plantar erythrodysaesthesia syndrome [None]
  - Haemoglobin decreased [None]
  - Toxicity to various agents [None]
  - Nausea [None]
  - Neutropenia [None]
  - Stomatitis [None]
  - Mucosal inflammation [None]
  - Epistaxis [None]
  - Tonsillitis [None]

NARRATIVE: CASE EVENT DATE: 20210621
